FAERS Safety Report 13689079 (Version 1)
Quarter: 2017Q2

REPORT INFORMATION
  Report Type: Spontaneous
  Country: US (occurrence: US)
  Receive Date: 20170624
  Receipt Date: 20170624
  Transmission Date: 20170830
  Serious: Yes (Disabling)
  Sender: FDA-Public Use
  Company Number: None

PATIENT
  Age: 44 Year
  Sex: Female
  Weight: 80.55 kg

DRUGS (12)
  1. VENLAFAXINE HCL [Suspect]
     Active Substance: VENLAFAXINE HYDROCHLORIDE
     Indication: DEPRESSION
     Dosage: ?          OTHER STRENGTH:MG;QUANTITY:90 CAPSULE(S);?
     Route: 048
  2. KLONOPIN [Concomitant]
     Active Substance: CLONAZEPAM
  3. LEVOCETIRIZINE [Concomitant]
     Active Substance: LEVOCETIRIZINE
  4. SEROQUEL [Concomitant]
     Active Substance: QUETIAPINE FUMARATE
  5. BUPROPION XL 300 EXT-RELEASE [Suspect]
     Active Substance: BUPROPION
     Indication: DEPRESSION
     Dosage: ?          OTHER STRENGTH:MG;QUANTITY:90 TABLET(S);?
     Route: 048
     Dates: start: 20170612, end: 20170620
  6. METADATE [Concomitant]
     Active Substance: METHYLPHENIDATE HYDROCHLORIDE
  7. VITAMIN D3 [Concomitant]
     Active Substance: CHOLECALCIFEROL
  8. TEGRETOL [Concomitant]
     Active Substance: CARBAMAZEPINE
  9. ALBUTEROL. [Concomitant]
     Active Substance: ALBUTEROL
  10. LEVOTHYROXINE. [Concomitant]
     Active Substance: LEVOTHYROXINE
  11. MIRENA [Concomitant]
     Active Substance: LEVONORGESTREL
  12. XANEX [Concomitant]

REACTIONS (3)
  - Drug dispensing error [None]
  - Drug dose omission [None]
  - Incorrect dose administered [None]

NARRATIVE: CASE EVENT DATE: 20170612
